FAERS Safety Report 18559902 (Version 2)
Quarter: 2020Q4

REPORT INFORMATION
  Report Type: Report from Study
  Country: None (occurrence: US)
  Receive Date: 20201130
  Receipt Date: 20201201
  Transmission Date: 20210114
  Serious: Yes (Other)
  Sender: FDA-Public Use
  Company Number: US-ABBVIE-20K-163-3603263-00

PATIENT
  Age: 68 Year
  Sex: Male
  Weight: 91.71 kg

DRUGS (1)
  1. HUMIRA [Suspect]
     Active Substance: ADALIMUMAB
     Indication: PSORIASIS
     Dosage: CITRATE FREE
     Route: 058

REACTIONS (6)
  - Wrist fracture [Unknown]
  - Bladder cyst [Unknown]
  - Fall [Unknown]
  - Bladder disorder [Unknown]
  - Upper limb fracture [Unknown]
  - Blood urine present [Unknown]

NARRATIVE: CASE EVENT DATE: 20200131
